FAERS Safety Report 8323599-1 (Version None)
Quarter: 2012Q2

REPORT INFORMATION
  Report Type: 
  Country: None (occurrence: None)
  Receive Date: 20120501
  Receipt Date: 20120423
  Transmission Date: 20120825
  Serious: Yes (Hospitalization)
  Sender: FDA-Public Use
  Company Number: US-AMGEN-USASP2012025568

PATIENT
  Sex: Male

DRUGS (1)
  1. ENBREL [Suspect]
     Indication: ANKYLOSING SPONDYLITIS
     Dosage: 50 MG, QWK
     Dates: start: 20090605, end: 20090801

REACTIONS (10)
  - SINUS POLYP [None]
  - MUSCULOSKELETAL PAIN [None]
  - HERNIA [None]
  - BACK PAIN [None]
  - ROTATOR CUFF SYNDROME [None]
  - SINUSITIS [None]
  - SPINAL OSTEOARTHRITIS [None]
  - NEURALGIA [None]
  - SCOLIOSIS [None]
  - SINUS PERFORATION [None]
